FAERS Safety Report 10077169 (Version 1)
Quarter: 2014Q2

REPORT INFORMATION
  Report Type: Spontaneous
  Country: US (occurrence: US)
  Receive Date: 20140414
  Receipt Date: 20140414
  Transmission Date: 20141212
  Serious: Yes (Hospitalization)
  Sender: FDA-Public Use
  Company Number: US-MYLANLABS-2014S1007715

PATIENT
  Age: 34 Year
  Sex: Female

DRUGS (8)
  1. METHYLPREDNISOLONE [Concomitant]
     Dosage: 4MG DOSE PACK
     Route: 065
  2. SALBUTAMOL [Suspect]
     Dosage: 2.5MG
     Route: 055
  3. SALBUTAMOL [Suspect]
     Dosage: TWO PUFFS (90 MCG/INHALATION)
     Route: 055
  4. SPIRONOLACTONE [Concomitant]
     Indication: PARALYSIS
     Dosage: 100MG DAILY
     Route: 065
  5. FLUOXETINE [Concomitant]
     Dosage: 20MG DAILY
     Route: 065
  6. AMITRIPTYLINE [Concomitant]
     Dosage: 10MG DAILY
     Route: 065
  7. MULTIVITAMIN [Concomitant]
     Dosage: DAILY
     Route: 065
  8. CEFIXIME [Concomitant]
     Dosage: 400MG DAILY
     Route: 048

REACTIONS (3)
  - Paralysis [Recovered/Resolved]
  - Hypokalaemia [Recovered/Resolved]
  - Condition aggravated [Recovered/Resolved]
